FAERS Safety Report 6740333-7 (Version None)
Quarter: 2010Q2

REPORT INFORMATION
  Report Type: 
  Country: None (occurrence: None)
  Receive Date: 20100520
  Receipt Date: 20090803
  Transmission Date: 20101027
  Serious: Yes (Other)
  Sender: FDA-Public Use
  Company Number: 2009228095

PATIENT
  Age: 23 Year
  Sex: Female
  Weight: 63 kg

DRUGS (1)
  1. MEDROXYPROGESTERONE ACETATE INJ [Suspect]
     Indication: CONTRACEPTION
     Dosage: 150 MG, INTRAMUSCULAR
     Route: 030
     Dates: start: 20080929

REACTIONS (3)
  - DRUG INEFFECTIVE [None]
  - METRORRHAGIA [None]
  - UNINTENDED PREGNANCY [None]
